FAERS Safety Report 7305667-6 (Version None)
Quarter: 2011Q1

REPORT INFORMATION
  Report Type: 
  Country: None (occurrence: None)
  Receive Date: 20110222
  Receipt Date: 20110214
  Transmission Date: 20110831
  Serious: Yes (Congenital Anomaly)
  Sender: FDA-Public Use
  Company Number: A0881192A

PATIENT
  Sex: Male

DRUGS (4)
  1. PAXIL [Suspect]
     Indication: MIGRAINE
     Dosage: 10MG AT NIGHT
     Route: 064
  2. IMITREX [Concomitant]
  3. ADVIL [Concomitant]
  4. PRENATAL VITAMINS [Concomitant]
     Route: 064

REACTIONS (3)
  - DRUG EXPOSURE DURING PREGNANCY [None]
  - ATRIAL SEPTAL DEFECT [None]
  - DILATATION VENTRICULAR [None]
